FAERS Safety Report 5662268-3 (Version None)
Quarter: 2008Q1

REPORT INFORMATION
  Report Type: 
  Country: None (occurrence: None)
  Receive Date: 20080312
  Receipt Date: 20080306
  Transmission Date: 20080703
  Serious: Yes (Life-Threatening)
  Sender: FDA-Public Use
  Company Number: JP-MERCK-0803USA01115

PATIENT
  Age: 76 Year
  Sex: Female

DRUGS (4)
  1. ZETIA [Suspect]
     Indication: HYPERLIPIDAEMIA
     Route: 048
     Dates: start: 20070703, end: 20070910
  2. ZETIA [Suspect]
     Route: 048
     Dates: start: 20070911, end: 20080115
  3. PRAVASTATIN SODIUM [Concomitant]
     Route: 065
     Dates: start: 20031007
  4. COZAAR [Concomitant]
     Route: 065

REACTIONS (1)
  - LUNG NEOPLASM MALIGNANT [None]
